FAERS Safety Report 25523824 (Version 2)
Quarter: 2025Q3

REPORT INFORMATION
  Report Type: Report from Study
  Country: US (occurrence: US)
  Receive Date: 20250707
  Receipt Date: 20250802
  Transmission Date: 20251021
  Serious: Yes (Other)
  Sender: ALEXION PHARMACEUTICALS
  Company Number: US-AstraZeneca-CH-00903247A

PATIENT
  Sex: Female

DRUGS (2)
  1. ULTOMIRIS [Suspect]
     Active Substance: RAVULIZUMAB-CWVZ
     Indication: Atypical haemolytic uraemic syndrome
     Route: 065
  2. BELATACEPT [Concomitant]
     Active Substance: BELATACEPT
     Dosage: UNK UNK, QMONTH
     Route: 065

REACTIONS (3)
  - Colon cancer [Unknown]
  - Hepatic cancer [Unknown]
  - Systemic lupus erythematosus [Unknown]
